FAERS Safety Report 22103594 (Version 2)
Quarter: 2023Q1

REPORT INFORMATION
  Report Type: Spontaneous
  Country: FR (occurrence: None)
  Receive Date: 20230316
  Receipt Date: 20230321
  Transmission Date: 20230418
  Serious: Yes (Life-Threatening, Other)
  Sender: FDA-Public Use
  Company Number: 2022A410250

PATIENT
  Age: 27296 Day
  Sex: Male
  Weight: 70 kg

DRUGS (4)
  1. LYNPARZA [Suspect]
     Active Substance: OLAPARIB
     Indication: Prostate cancer metastatic
     Dosage: 300MG IN THE MORNING AND 300MG IN THE EVENING
     Route: 048
     Dates: start: 20221124
  2. TAMSULOSIN [Concomitant]
     Active Substance: TAMSULOSIN
  3. PREDNISONE [Concomitant]
     Active Substance: PREDNISONE
     Route: 065
  4. PREDNISONE [Concomitant]
     Active Substance: PREDNISONE
     Route: 065

REACTIONS (11)
  - Metastases to central nervous system [Unknown]
  - Metastases to bone [Unknown]
  - Creatinine renal clearance decreased [Unknown]
  - Blood alkaline phosphatase increased [Unknown]
  - Blood creatinine increased [Unknown]
  - Red blood cell count increased [Unknown]
  - Fatigue [Unknown]
  - Haemoglobin decreased [Unknown]
  - Nausea [Recovered/Resolved]
  - Vomiting [Recovered/Resolved]
  - Taste disorder [Unknown]

NARRATIVE: CASE EVENT DATE: 20221124
